FAERS Safety Report 18053751 (Version 1)
Quarter: 2020Q3

REPORT INFORMATION
  Report Type: Spontaneous
  Country: IN (occurrence: IN)
  Receive Date: 20200722
  Receipt Date: 20200722
  Transmission Date: 20201103
  Serious: Yes (Life-Threatening, Other)
  Sender: FDA-Public Use
  Company Number: IN-LUPIN LIMITED-2020-03535

PATIENT
  Age: 35 Year
  Sex: Male

DRUGS (1)
  1. SILDENAFIL. [Suspect]
     Active Substance: SILDENAFIL
     Indication: SEXUAL DYSFUNCTION
     Dosage: UNK, IRREGULARLY
     Route: 065

REACTIONS (7)
  - Prescription drug used without a prescription [Unknown]
  - Lymphadenopathy [Recovered/Resolved]
  - Aspartate aminotransferase increased [Recovered/Resolved]
  - Alanine aminotransferase increased [Recovered/Resolved]
  - Drug reaction with eosinophilia and systemic symptoms [Recovered/Resolved]
  - Leukocytosis [Recovered/Resolved]
  - Thrombocytopenia [Recovered/Resolved]
